FAERS Safety Report 6358001-2 (Version None)
Quarter: 2009Q3

REPORT INFORMATION
  Report Type: 
  Country: None (occurrence: None)
  Receive Date: 20090911
  Receipt Date: 20090910
  Transmission Date: 20100115
  Serious: Yes (Death, Hospitalization)
  Sender: FDA-Public Use
  Company Number: AUR-APU-2009-00559

PATIENT
  Age: 25 Day
  Sex: Male

DRUGS (11)
  1. ZIDOVUDINE [Suspect]
     Indication: HUMAN IMMUNODEFICIENCY VIRUS TRANSMISSION
     Dosage: 4 MG/KG - Q12HOURS
  2. ZIDOVUDINE [Suspect]
     Indication: PROPHYLAXIS
     Dosage: 4 MG/KG - Q12HOURS
  3. NEVIRAPINE [Suspect]
     Indication: HUMAN IMMUNODEFICIENCY VIRUS TRANSMISSION
     Dosage: 2MG/KG - X1 -
  4. NEVIRAPINE [Suspect]
     Indication: PROPHYLAXIS
     Dosage: 2MG/KG - X1 -
  5. TRUVADA [Suspect]
     Indication: HUMAN IMMUNODEFICIENCY VIRUS TRANSMISSION
     Dosage: X1, 1 DOSE AFTER BIRTH
  6. TRUVADA [Suspect]
     Indication: PROPHYLAXIS
     Dosage: X1, 1 DOSE AFTER BIRTH
  7. NEVIRAPINE [Suspect]
     Indication: HUMAN IMMUNODEFICIENCY VIRUS TRANSMISSION
     Dosage: 200 MG -X1- TRANSPLACENTALLY, 1 DOSE AT ONSET OF LABOR
     Route: 064
  8. NEVIRAPINE [Suspect]
     Indication: PROPHYLAXIS
     Dosage: 200 MG -X1- TRANSPLACENTALLY, 1 DOSE AT ONSET OF LABOR
     Route: 064
  9. ZIDOVUDINE [Suspect]
     Indication: HUMAN IMMUNODEFICIENCY VIRUS TRANSMISSION
     Dosage: 300 MG - BID- TRANSPLACENTALLY ,- DURING GESTATION
     Route: 064
  10. TENOFOVIR DISOPROXIL FUMARATE [Suspect]
     Indication: HUMAN IMMUNODEFICIENCY VIRUS TRANSMISSION
     Dosage: 2 TABLET - X1- TRANSPLACENTALLY; 1 DOSE PRIOR TO DELIVERY
     Route: 064
  11. TENOFOVIR DISOPROXIL FUMARATE [Suspect]
     Indication: PROPHYLAXIS
     Dosage: 2 TABLET - X1- TRANSPLACENTALLY; 1 DOSE PRIOR TO DELIVERY
     Route: 064

REACTIONS (4)
  - CAESAREAN SECTION [None]
  - DEATH NEONATAL [None]
  - GASTROENTERITIS [None]
  - MATERNAL DRUGS AFFECTING FOETUS [None]
